FAERS Safety Report 12597866 (Version 3)
Quarter: 2016Q4

REPORT INFORMATION
  Report Type: Spontaneous
  Country: US (occurrence: US)
  Receive Date: 20160727
  Receipt Date: 20161129
  Transmission Date: 20170207
  Serious: Yes (Other)
  Sender: FDA-Public Use
  Company Number: US-PFIZER INC-2016358756

PATIENT
  Age: 16 Year
  Sex: Male
  Weight: 75.45 kg

DRUGS (10)
  1. VFEND [Suspect]
     Active Substance: VORICONAZOLE
     Indication: ANTIFUNGAL PROPHYLAXIS
     Dosage: 350 MG, 2X/DAY
     Route: 048
     Dates: start: 201605
  2. VFEND [Suspect]
     Active Substance: VORICONAZOLE
     Indication: LEUKAEMIA
     Dosage: 350 MG, 2X/DAY
     Dates: start: 20160512
  3. MARINOL [Concomitant]
     Active Substance: DRONABINOL
     Indication: DECREASED APPETITE
  4. ZOFRAN [Concomitant]
     Active Substance: ONDANSETRON HYDROCHLORIDE
     Dosage: 8MG EVERY 8 HOURS AS NEEDED
     Dates: start: 20160512, end: 20160812
  5. MELATONIN [Concomitant]
     Active Substance: MELATONIN
     Indication: SLEEP DISORDER
     Dosage: 3MG AT NIGHT
     Dates: start: 20160526
  6. VFEND [Suspect]
     Active Substance: VORICONAZOLE
     Dosage: ACTUALLY NOWTAKES 1 200 MG TAB AND 250 MG TAB
  7. TYLENOL [Concomitant]
     Active Substance: ACETAMINOPHEN
     Indication: HEADACHE
     Dosage: TWO EVERY 4 TO 6 HOURS AS NEEDED
  8. VITAMIN D /00107901/ [Concomitant]
     Active Substance: ERGOCALCIFEROL
     Dosage: 500 UNITS ONCE A DAY
     Dates: start: 20160512
  9. MARINOL [Concomitant]
     Active Substance: DRONABINOL
     Indication: NAUSEA
     Dosage: 5 MG, 2X/DAY
     Dates: start: 20160623
  10. HYDROXYZINE [Concomitant]
     Active Substance: HYDROXYZINE\HYDROXYZINE HYDROCHLORIDE
     Indication: PRURITUS
     Dosage: 25MG EVERY 6 HOURS AS NEEDED
     Dates: start: 20160512, end: 20160812

REACTIONS (2)
  - Product use issue [Unknown]
  - Electrocardiogram QT prolonged [Recovered/Resolved]

NARRATIVE: CASE EVENT DATE: 20160512
